FAERS Safety Report 16113122 (Version 1)
Quarter: 2019Q1

REPORT INFORMATION
  Report Type: Spontaneous
  Country: US (occurrence: US)
  Receive Date: 20190325
  Receipt Date: 20190325
  Transmission Date: 20190418
  Serious: Yes (Other)
  Sender: FDA-Public Use
  Company Number: US-PFIZER INC-2019124203

PATIENT
  Sex: Female

DRUGS (1)
  1. CHANTIX [Suspect]
     Active Substance: VARENICLINE TARTRATE
     Indication: SMOKING CESSATION THERAPY
     Dosage: UNK (0.5MG-1MG STARTER PACK, 30 DAY SUPPLY)
     Dates: start: 2006

REACTIONS (4)
  - Breast cancer [Unknown]
  - Precancerous cells present [Unknown]
  - Large intestine polyp [Unknown]
  - Benign neoplasm [Unknown]
